FAERS Safety Report 9363723 (Version 1)
Quarter: 2013Q2

REPORT INFORMATION
  Report Type: Spontaneous
  Country: US (occurrence: None)
  Receive Date: 20130618
  Receipt Date: 20130618
  Transmission Date: 20140414
  Serious: Yes (Other)
  Sender: FDA-Public Use
  Company Number: 2013P1006831

PATIENT
  Age: 52 Year
  Sex: Female
  Weight: 50.35 kg

DRUGS (8)
  1. CRX SYSTEM C CLARIFYING SERUM FOR NORMAL TO DRY SKIN [Suspect]
     Route: 061
     Dates: start: 201210, end: 201303
  2. C - BALANCING TONER [Suspect]
     Route: 061
     Dates: start: 201210, end: 201303
  3. C - CLEANSING GEL [Suspect]
     Route: 061
     Dates: start: 201210, end: 20130523
  4. C - SUNGARD SPF 30 [Suspect]
     Route: 061
     Dates: start: 201210, end: 201303
  5. CRX SYSTEM C THERAPY NIGHT CREAM [Suspect]
     Route: 061
     Dates: start: 201210, end: 20130523
  6. UNSPECIFIED OBAGI MOISTURIZER [Suspect]
     Route: 061
     Dates: start: 201210, end: 201303
  7. ARMOUR THYROID [Concomitant]
  8. ESTROGEN [Concomitant]

REACTIONS (9)
  - Pain in extremity [None]
  - Back pain [None]
  - Arthralgia [None]
  - Oedema peripheral [None]
  - Fatigue [None]
  - Movement disorder [None]
  - Erythema [None]
  - Fluid retention [None]
  - Asthenia [None]
